FAERS Safety Report 14090533 (Version 8)
Quarter: 2018Q3

REPORT INFORMATION
  Report Type: Report from Study
  Country: CA (occurrence: CA)
  Receive Date: 20171015
  Receipt Date: 20180717
  Transmission Date: 20181010
  Serious: Yes (Death, Hospitalization, Other)
  Sender: FDA-Public Use
  Company Number: CA-BRISTOL-MYERS SQUIBB COMPANY-BMS-2017-090925

PATIENT
  Age: 81 Year
  Sex: Female

DRUGS (1)
  1. ABATACEPT [Suspect]
     Active Substance: ABATACEPT
     Indication: RHEUMATOID ARTHRITIS
     Dosage: 125 MG, QWK
     Route: 058
     Dates: start: 20170723

REACTIONS (12)
  - Colitis [Unknown]
  - Aortic valve disease [Unknown]
  - Speech disorder [Unknown]
  - Upper respiratory tract infection [Unknown]
  - Death [Fatal]
  - Pelvic fracture [Unknown]
  - Blood urine present [Unknown]
  - Cerebrovascular accident [Unknown]
  - Urinary tract infection [Unknown]
  - Fatigue [Unknown]
  - Fall [Unknown]
  - Purpura [Unknown]

NARRATIVE: CASE EVENT DATE: 20171006
